FAERS Safety Report 4822631-7 (Version None)
Quarter: 2005Q4

REPORT INFORMATION
  Report Type: 
  Country: None (occurrence: None)
  Receive Date: 20051108
  Receipt Date: 20051006
  Transmission Date: 20060501
  Serious: Yes (Death, Hospitalization)
  Sender: FDA-Public Use
  Company Number: 200513706EU

PATIENT
  Age: 55 Year
  Sex: Male

DRUGS (9)
  1. HYDROCORTISONE [Suspect]
     Indication: DRUG USE FOR UNKNOWN INDICATION
  2. KINERET [Suspect]
     Indication: RHEUMATOID ARTHRITIS
     Route: 058
     Dates: start: 20050311, end: 20050322
  3. KINERET [Suspect]
     Indication: AMYLOIDOSIS
     Route: 058
     Dates: start: 20050311, end: 20050322
  4. METHOTREXATE [Suspect]
     Indication: RHEUMATOID ARTHRITIS
     Route: 048
     Dates: start: 20041101
  5. FOLIC ACID [Suspect]
     Indication: DRUG USE FOR UNKNOWN INDICATION
     Dates: start: 20041101
  6. CELECOXIB [Concomitant]
     Indication: RHEUMATOID ARTHRITIS
     Dosage: DOSE: 100/200
     Route: 048
     Dates: start: 20050602
  7. ATORVASTATIN CALCIUM [Concomitant]
     Indication: DRUG USE FOR UNKNOWN INDICATION
     Route: 048
  8. PERINDOPRIL [Concomitant]
     Indication: DRUG USE FOR UNKNOWN INDICATION
     Route: 048
  9. WARFARIN [Concomitant]
     Indication: DRUG USE FOR UNKNOWN INDICATION
     Route: 048

REACTIONS (7)
  - ARM AMPUTATION [None]
  - DIARRHOEA [None]
  - HAEMODIALYSIS [None]
  - NECROTISING FASCIITIS [None]
  - RENAL FAILURE [None]
  - STREPTOCOCCAL SEPSIS [None]
  - VOMITING [None]
